FAERS Safety Report 9407325 (Version 2)
Quarter: 2013Q3

REPORT INFORMATION
  Report Type: Report from Study
  Country: GB (occurrence: GB)
  Receive Date: 20130718
  Receipt Date: 20130911
  Transmission Date: 20140515
  Serious: Yes (Death, Other)
  Sender: FDA-Public Use
  Company Number: GB-PFIZER INC-2013204907

PATIENT
  Sex: Female

DRUGS (13)
  1. TIGECYCLINE [Suspect]
     Indication: ABDOMINAL ABSCESS
     Dosage: 100 UG, SINGLE
     Route: 042
     Dates: start: 20100923, end: 20100923
  2. TIGECYCLINE [Suspect]
     Dosage: 50 UG, 2X/DAY
     Route: 042
     Dates: start: 20100924, end: 20100924
  3. PARACETAMOL [Concomitant]
     Indication: ANALGESIC THERAPY
     Dosage: UNK
     Route: 048
     Dates: start: 20100922, end: 20100924
  4. TRAMADOL [Concomitant]
     Indication: ANALGESIC THERAPY
     Dosage: UNK
     Route: 048
     Dates: start: 20100923, end: 20100924
  5. MORPHINE [Concomitant]
     Indication: ANALGESIC THERAPY
     Dosage: UNK
     Route: 030
     Dates: start: 20100924
  6. MORPHINE [Concomitant]
     Dosage: UNK
     Route: 058
     Dates: start: 20100924
  7. SALBUTAMOL [Concomitant]
     Indication: ANTASTHMATIC DRUG LEVEL THERAPEUTIC
     Dosage: UNK
     Dates: start: 20100923
  8. TIOTROPIUM [Concomitant]
     Indication: ANTASTHMATIC DRUG LEVEL THERAPEUTIC
     Dosage: UNK
     Route: 055
     Dates: start: 20100924
  9. FUROSEMIDE [Concomitant]
     Indication: DIURETIC THERAPY
     Dosage: UNK
     Route: 048
     Dates: start: 20100925
  10. LANSOPRAZOLE [Concomitant]
     Dosage: UNK
     Route: 048
     Dates: start: 20100925
  11. NICORANDIL [Concomitant]
     Dosage: UNK
     Route: 048
     Dates: start: 20100925
  12. FERROUS FUMARATE [Concomitant]
     Indication: BLOOD IRON
     Dosage: UNK
     Route: 048
     Dates: start: 20100925
  13. OXYNORM [Concomitant]
     Indication: ANALGESIC THERAPY
     Dosage: UNK
     Route: 058
     Dates: start: 20100924

REACTIONS (2)
  - Abdominal abscess [Fatal]
  - Abdominal sepsis [Fatal]
